FAERS Safety Report 8106303-1 (Version None)
Quarter: 2012Q1

REPORT INFORMATION
  Report Type: 
  Country: None (occurrence: None)
  Receive Date: 20120202
  Receipt Date: 20120125
  Transmission Date: 20120608
  Serious: Yes (Hospitalization)
  Sender: FDA-Public Use
  Company Number: US-CELGENEUS-163-21880-11121197

PATIENT
  Sex: Male

DRUGS (23)
  1. CRESTOR [Concomitant]
     Dosage: 20 MILLIGRAM
     Route: 065
  2. SUCRALFATE [Concomitant]
     Route: 065
  3. ACYCLOVIR [Concomitant]
     Dosage: 400 MILLIGRAM
     Route: 065
  4. DIGOXIN [Concomitant]
     Dosage: .125 MILLIGRAM
     Route: 065
  5. METFORMIN [Concomitant]
     Dosage: 1000 MILLIGRAM
     Route: 065
  6. GABAPENTIN [Concomitant]
     Dosage: 900 MILLIGRAM
     Route: 065
  7. DEXAMETHASONE [Concomitant]
     Dosage: 20 MILLIGRAM
     Route: 065
  8. CARAFATE [Concomitant]
     Dosage: 2 GRAM
     Route: 065
  9. ASPIRIN [Concomitant]
     Dosage: 81 MILLIGRAM
     Route: 065
  10. DILTIAZEM CD [Concomitant]
     Dosage: 180 MILLIGRAM
     Route: 065
  11. ATENOLOL [Concomitant]
     Dosage: 25 MILLIGRAM
     Route: 065
  12. REVLIMID [Suspect]
     Dosage: 10 MILLIGRAM
     Route: 048
     Dates: start: 20111007, end: 20111229
  13. REVLIMID [Suspect]
     Dosage: 25 MILLIGRAM
     Route: 048
     Dates: start: 20110112
  14. FISH OIL [Concomitant]
     Dosage: 2
     Route: 065
  15. BUPROPION HCL [Concomitant]
     Route: 065
  16. MORPHINE [Concomitant]
     Dosage: 115 MILLIGRAM
     Route: 065
  17. MEN'S MULTIVITAMIN + MINERAL [Concomitant]
     Dosage: 2
     Route: 065
  18. PRADAXA [Concomitant]
     Dosage: 150 MILLIGRAM
     Route: 065
  19. CYCLOBENZAPRINE [Concomitant]
     Dosage: 10 MILLIGRAM
     Route: 065
  20. ONDANSETRON HCL [Concomitant]
     Dosage: 8 MILLIGRAM
     Route: 065
  21. WELLBUTRIN [Concomitant]
     Dosage: 150 MILLIGRAM
     Route: 065
  22. FOLIC ACID [Concomitant]
     Dosage: 400 MILLIGRAM
     Route: 065
  23. LORTAB [Concomitant]
     Dosage: 5/500MG
     Route: 065

REACTIONS (3)
  - CARDIAC FAILURE CONGESTIVE [None]
  - PERICARDIAL EFFUSION [None]
  - RENAL IMPAIRMENT [None]
